FAERS Safety Report 23558370 (Version 3)
Quarter: 2024Q1

REPORT INFORMATION
  Report Type: Spontaneous
  Country: US (occurrence: US)
  Receive Date: 20240223
  Receipt Date: 20240304
  Transmission Date: 20240409
  Serious: Yes (Hospitalization, Other)
  Sender: FDA-Public Use
  Company Number: US-SANDOZ-SDZ2024US018787

PATIENT
  Sex: Female

DRUGS (1)
  1. ZARXIO [Suspect]
     Active Substance: FILGRASTIM-SNDZ
     Indication: Product used for unknown indication
     Dosage: 0.5 ML N/A DOSE EVERY N/A N/A
     Route: 058

REACTIONS (4)
  - Leukaemia [Unknown]
  - Infection [Unknown]
  - Feeling abnormal [Unknown]
  - Product dose omission issue [Unknown]
